FAERS Safety Report 6772595-4 (Version None)
Quarter: 2010Q2

REPORT INFORMATION
  Report Type: 
  Country: None (occurrence: None)
  Receive Date: 20100616
  Receipt Date: 20090608
  Transmission Date: 20101027
  Serious: No
  Sender: FDA-Public Use
  Company Number: US-ASTRAZENECA-2009UW14674

PATIENT
  Age: 70 Year
  Sex: Female

DRUGS (8)
  1. PULMICORT RESPULES [Suspect]
     Indication: EMPHYSEMA
     Route: 055
  2. XOPENEX [Concomitant]
  3. ALLEGRA [Concomitant]
  4. AMARYL [Concomitant]
  5. ZANTAC [Concomitant]
  6. LEVOTHYROXINE SODIUM [Concomitant]
  7. VALIUM [Concomitant]
  8. DIOVAN [Concomitant]

REACTIONS (5)
  - CHEST DISCOMFORT [None]
  - EAR DISORDER [None]
  - HYPERSENSITIVITY [None]
  - PALPITATIONS [None]
  - PRURITUS [None]
